FAERS Safety Report 16183951 (Version 1)
Quarter: 2019Q2

REPORT INFORMATION
  Report Type: Report from Study
  Country: KR (occurrence: KR)
  Receive Date: 20190411
  Receipt Date: 20190411
  Transmission Date: 20190711
  Serious: Yes (Death)
  Sender: FDA-Public Use
  Company Number: KR-TEVA-2019-KR-1035140

PATIENT

DRUGS (1)
  1. VORICONAZOLE. [Suspect]
     Active Substance: VORICONAZOLE
     Indication: ANTI-INFECTIVE THERAPY
     Route: 065

REACTIONS (1)
  - Drug reaction with eosinophilia and systemic symptoms [Fatal]
